FAERS Safety Report 8763038 (Version 4)
Quarter: 2013Q3

REPORT INFORMATION
  Report Type: Spontaneous
  Country: US (occurrence: None)
  Receive Date: 20120823
  Receipt Date: 20130815
  Transmission Date: 20140515
  Serious: Yes (Hospitalization, Other)
  Sender: FDA-Public Use
  Company Number: ADR-2012-01535

PATIENT
  Age: 60 Year
  Sex: Male

DRUGS (2)
  1. LIORESAL [Suspect]
     Indication: MUSCLE SPASTICITY
     Dosage: 176 MCG/DAY
  2. LIORESAL [Suspect]
     Indication: SPINAL CORD INJURY
     Dosage: 176 MCG/DAY

REACTIONS (14)
  - Implant site infection [None]
  - Nausea [None]
  - Headache [None]
  - Photophobia [None]
  - Incision site haemorrhage [None]
  - Implant site extravasation [None]
  - Meningeal disorder [None]
  - Pyrexia [None]
  - Incision site erythema [None]
  - Wound dehiscence [None]
  - Implant site extravasation [None]
  - Wound infection staphylococcal [None]
  - Culture wound positive [None]
  - Pain [None]
